FAERS Safety Report 6370121-5 (Version None)
Quarter: 2009Q3

REPORT INFORMATION
  Report Type: 
  Country: None (occurrence: None)
  Receive Date: 20090923
  Receipt Date: 20071102
  Transmission Date: 20100115
  Serious: Yes (Hospitalization)
  Sender: FDA-Public Use
  Company Number: US-ASTRAZENECA-2006UW21150

PATIENT
  Age: 23170 Day
  Sex: Male
  Weight: 94.3 kg

DRUGS (19)
  1. SEROQUEL [Suspect]
     Route: 048
     Dates: start: 20000301
  2. SEROQUEL [Suspect]
     Dosage: .5 TABLET IN EVENING .5 AT BEDTIME
     Route: 048
     Dates: end: 20060222
  3. NEURONTIN [Concomitant]
     Route: 048
  4. PREMARIN [Concomitant]
     Dosage: 0.9MG-1.25MG
     Route: 048
  5. ZOCOR [Concomitant]
     Route: 048
  6. DEPAKOTE [Concomitant]
     Route: 048
  7. COZAAR [Concomitant]
     Route: 048
  8. ALLEGRA [Concomitant]
     Route: 048
  9. NAPROXEN [Concomitant]
     Dosage: 250 - 500MG
     Route: 048
  10. PLENDIL [Concomitant]
     Route: 048
     Dates: start: 20050509
  11. MAXZIDE [Concomitant]
     Route: 048
  12. ZANTAC [Concomitant]
     Route: 048
  13. LEXAPRO [Concomitant]
     Route: 048
  14. PERCOCET [Concomitant]
     Route: 048
  15. ASPIRIN [Concomitant]
     Route: 048
     Dates: start: 20070613
  16. ZOLOFT [Concomitant]
     Route: 048
  17. ADALAT-CC-SR [Concomitant]
     Route: 048
  18. ACYCLOVIR [Concomitant]
     Route: 048
  19. K-DUR [Concomitant]
     Route: 048

REACTIONS (3)
  - DIABETES MELLITUS [None]
  - HYPERGLYCAEMIC HYPEROSMOLAR NONKETOTIC SYNDROME [None]
  - TYPE 2 DIABETES MELLITUS [None]
